FAERS Safety Report 7617757-9 (Version None)
Quarter: 2011Q3

REPORT INFORMATION
  Report Type: 
  Country: None (occurrence: None)
  Receive Date: 20110718
  Receipt Date: 20110708
  Transmission Date: 20111222
  Serious: Yes (Hospitalization)
  Sender: FDA-Public Use
  Company Number: US-JNJFOC-20110704852

PATIENT
  Age: 37 Year
  Sex: Female
  Weight: 83.6 kg

DRUGS (4)
  1. THORAZINE [Concomitant]
     Route: 065
     Dates: start: 20110701
  2. THORAZINE [Concomitant]
     Route: 065
     Dates: start: 20110708
  3. INVEGA SUSTENNA [Suspect]
     Indication: PRODUCT USED FOR UNKNOWN INDICATION
     Route: 030
     Dates: start: 20110708
  4. RISPERDAL [Suspect]
     Indication: PRODUCT USED FOR UNKNOWN INDICATION
     Route: 048
     Dates: start: 20110704

REACTIONS (4)
  - INCORRECT DOSE ADMINISTERED [None]
  - PSYCHOTIC DISORDER [None]
  - DEVICE LEAKAGE [None]
  - TREATMENT NONCOMPLIANCE [None]
